FAERS Safety Report 10449394 (Version 1)
Quarter: 2014Q3

REPORT INFORMATION
  Report Type: Spontaneous
  Country: US (occurrence: US)
  Receive Date: 20140912
  Receipt Date: 20140912
  Transmission Date: 20150326
  Serious: Yes (Hospitalization, Other)
  Sender: FDA-Public Use
  Company Number: US-ROCHE-1461215

PATIENT
  Age: 51 Year
  Sex: Male
  Weight: 129 kg

DRUGS (4)
  1. CLADRIBINE. [Suspect]
     Active Substance: CLADRIBINE
     Indication: PRODUCT USED FOR UNKNOWN INDICATION
     Route: 042
     Dates: start: 20090806, end: 20090810
  2. CLADRIBINE. [Suspect]
     Active Substance: CLADRIBINE
     Route: 065
     Dates: start: 20080605
  3. RITUXAN [Suspect]
     Active Substance: RITUXIMAB
     Indication: HAIRY CELL LEUKAEMIA
     Route: 042
     Dates: start: 20090806, end: 20090924
  4. RITUXAN [Suspect]
     Active Substance: RITUXIMAB
     Dosage: 2ND ROUND
     Route: 042
     Dates: start: 20100520, end: 20100708

REACTIONS (3)
  - Cellulitis [Unknown]
  - Infection [Unknown]
  - Fall [Unknown]

NARRATIVE: CASE EVENT DATE: 20131007
